FAERS Safety Report 7609885-9 (Version None)
Quarter: 2011Q3

REPORT INFORMATION
  Report Type: 
  Country: None (occurrence: None)
  Receive Date: 20110714
  Receipt Date: 20110707
  Transmission Date: 20111222
  Serious: Yes (Death, Hospitalization, Other)
  Sender: FDA-Public Use
  Company Number: US-GENENTECH-321168

PATIENT
  Age: 67 Year
  Sex: Male

DRUGS (7)
  1. SOLIRIS [Suspect]
     Indication: PRODUCT USED FOR UNKNOWN INDICATION
     Dosage: UNK
     Dates: start: 20100805
  2. EVEROLIMUS [Concomitant]
     Indication: RENAL TRANSPLANT
  3. IMMUNE GLOBULIN NOS [Concomitant]
     Indication: PRODUCT USED FOR UNKNOWN INDICATION
  4. RITUXAN [Suspect]
     Indication: PRODUCT USED FOR UNKNOWN INDICATION
  5. PREDNISONE [Concomitant]
     Indication: RENAL TRANSPLANT
  6. MYCOPHENOLATE MEFETIL [Concomitant]
     Indication: RENAL TRANSPLANT
  7. PLASMA EXCHANGE [Concomitant]
     Indication: PRODUCT USED FOR UNKNOWN INDICATION

REACTIONS (7)
  - CANDIDA SEPSIS [None]
  - CYTOMEGALOVIRUS INFECTION [None]
  - ESCHERICHIA URINARY TRACT INFECTION [None]
  - ISCHAEMIC STROKE [None]
  - PROGRESSIVE MULTIFOCAL LEUKOENCEPHALOPATHY [None]
  - RENAL FAILURE ACUTE [None]
  - BRONCHOPULMONARY ASPERGILLOSIS [None]
